FAERS Safety Report 8170950-1 (Version None)
Quarter: 2012Q1

REPORT INFORMATION
  Report Type: 
  Country: None (occurrence: None)
  Receive Date: 20120228
  Receipt Date: 20120227
  Transmission Date: 20120608
  Serious: Yes (Death, Hospitalization)
  Sender: FDA-Public Use
  Company Number: JP-BAYER-200912188BYL

PATIENT
  Age: 55 Year
  Sex: Male
  Weight: 61 kg

DRUGS (8)
  1. NEXAVAR [Suspect]
     Dosage: 400 MG (DAILY DOSE), ORAL
     Route: 048
     Dates: start: 20100118, end: 20100622
  2. NEXAVAR [Suspect]
     Dosage: 400 MG, QOD
     Route: 048
     Dates: start: 20100714
  3. NEXAVAR [Suspect]
     Dosage: 400 MG (DAILY DOSE), ORAL
     Route: 048
     Dates: start: 20090627, end: 20090629
  4. NEXAVAR [Suspect]
     Dosage: 400 MG, QOD
     Route: 048
     Dates: start: 20090807, end: 20100117
  5. NEXAVAR [Suspect]
     Indication: HEPATIC NEOPLASM MALIGNANT
     Dosage: 400 MG, BID
     Route: 048
     Dates: start: 20090622, end: 20090627
  6. NEXAVAR [Suspect]
     Dosage: 400 MG (DAILY DOSE), ORAL
     Route: 048
     Dates: start: 20090707, end: 20090718
  7. NEXAVAR [Suspect]
     Dosage: 400 MG, QOD
     Dates: start: 20111216, end: 20120116
  8. INTERFERON [Concomitant]
     Dosage: UNK

REACTIONS (4)
  - HEPATIC NEOPLASM MALIGNANT [None]
  - PALMAR-PLANTAR ERYTHRODYSAESTHESIA SYNDROME [None]
  - DECREASED APPETITE [None]
  - HEPATIC FUNCTION ABNORMAL [None]
